FAERS Safety Report 12009384 (Version 1)
Quarter: 2016Q1

REPORT INFORMATION
  Report Type: Report from Study
  Country: US (occurrence: US)
  Receive Date: 20160205
  Receipt Date: 20160205
  Transmission Date: 20160526
  Serious: Yes (Other)
  Sender: FDA-Public Use
  Company Number: US-ACCORD-037515

PATIENT
  Age: 11 Year
  Sex: Male

DRUGS (9)
  1. SULFAMETHOXAZOLE/TRIMETHOPRIM [Concomitant]
  2. FOLINIC ACID [Concomitant]
     Active Substance: LEUCOVORIN
  3. METHOTREXATE [Suspect]
     Active Substance: METHOTREXATE
     Indication: ACUTE LYMPHOCYTIC LEUKAEMIA
     Dosage: RECEIVED INTRATHECAL AND INTRAVENOUS HIGH DOSE (5G/M2).?PHASE OF TREATMENT: INTERIM MAINTENANCE 1
     Route: 037
  4. LORAZEPAM. [Concomitant]
     Active Substance: LORAZEPAM
  5. MERCAPTOPURINE/MERCAPTOPURINE ANHYDROUS [Concomitant]
  6. ONDANSETRON [Concomitant]
     Active Substance: ONDANSETRON
  7. FENTANYL. [Concomitant]
     Active Substance: FENTANYL
  8. MACROGOL [Concomitant]
     Active Substance: POLYETHYLENE GLYCOLS
  9. VINCRISTINE [Concomitant]
     Active Substance: VINCRISTINE

REACTIONS (3)
  - Paraesthesia [Unknown]
  - Neurotoxicity [Unknown]
  - Asthenia [Unknown]
